FAERS Safety Report 9838967 (Version 1)
Quarter: 2014Q1

REPORT INFORMATION
  Report Type: Spontaneous
  Country: US (occurrence: US)
  Receive Date: 20140123
  Receipt Date: 20140123
  Transmission Date: 20141002
  Serious: Yes (Other)
  Sender: FDA-Public Use
  Company Number: US-ASTRAZENECA-2014SE03971

PATIENT
  Age: 289 Month
  Sex: Male
  Weight: 72.6 kg

DRUGS (7)
  1. SEROQUEL [Suspect]
     Indication: GENERALISED ANXIETY DISORDER
     Route: 048
     Dates: start: 20140109, end: 20140109
  2. SEROQUEL [Suspect]
     Indication: GENERALISED ANXIETY DISORDER
     Route: 048
     Dates: start: 20140110, end: 20140110
  3. SEROQUEL [Suspect]
     Indication: GENERALISED ANXIETY DISORDER
     Route: 048
     Dates: start: 20140111, end: 20140111
  4. SEROQUEL [Suspect]
     Indication: GENERALISED ANXIETY DISORDER
     Route: 048
     Dates: start: 20140112, end: 20140112
  5. SEROQUEL [Suspect]
     Indication: GENERALISED ANXIETY DISORDER
     Route: 048
     Dates: start: 20140113, end: 20140113
  6. BUPROPION HCL XL [Concomitant]
     Indication: DEPRESSION
     Route: 048
     Dates: start: 201312
  7. FLEXERIL [Concomitant]
     Indication: BACK PAIN
     Route: 048
     Dates: start: 2013

REACTIONS (11)
  - Suicidal ideation [Unknown]
  - Altered state of consciousness [Unknown]
  - Diarrhoea [Unknown]
  - Depression [Unknown]
  - Impaired self-care [Unknown]
  - Confusional state [Unknown]
  - Hypokinesia [Unknown]
  - Hypersomnia [Unknown]
  - Sedation [Unknown]
  - Irritability [Unknown]
  - Intentional drug misuse [Unknown]
